FAERS Safety Report 13535020 (Version 3)
Quarter: 2017Q3

REPORT INFORMATION
  Report Type: Spontaneous
  Country: US (occurrence: US)
  Receive Date: 20170511
  Receipt Date: 20170724
  Transmission Date: 20171127
  Serious: No
  Sender: FDA-Public Use
  Company Number: US-009507513-1704USA013396

PATIENT
  Age: 49 Year
  Sex: Female
  Weight: 99.77 kg

DRUGS (3)
  1. IRON (UNSPECIFIED) [Concomitant]
     Active Substance: IRON
  2. ASCORBIC ACID. [Concomitant]
     Active Substance: ASCORBIC ACID
  3. NEXPLANON [Suspect]
     Active Substance: ETONOGESTREL
     Indication: CONTRACEPTION
     Dosage: 1 DF, EVERY 3 YEARS, LEFT ARM-IMPLANT
     Route: 059
     Dates: start: 20170207

REACTIONS (2)
  - Vaginal haemorrhage [Unknown]
  - Menorrhagia [Unknown]

NARRATIVE: CASE EVENT DATE: 20170207
